FAERS Safety Report 5159053-8 (Version None)
Quarter: 2006Q4

REPORT INFORMATION
  Report Type: 
  Country: None (occurrence: None)
  Receive Date: 20061128
  Receipt Date: 20061122
  Transmission Date: 20070319
  Serious: Yes (Death, Hospitalization)
  Sender: FDA-Public Use
  Company Number: GB-ROXANE LABORATORIES, INC-2006-UK-04740UK

PATIENT
  Age: 77 Year
  Sex: Male

DRUGS (4)
  1. ORAMORPH SR [Suspect]
     Indication: PAIN
     Route: 048
  2. LYRICA [Suspect]
     Indication: NEURALGIA
     Dates: start: 20051001
  3. OXYCODONE HCL [Suspect]
  4. DICLOFENAC SODIUM [Concomitant]
     Indication: PAIN

REACTIONS (3)
  - CONFUSIONAL STATE [None]
  - DRUG INTERACTION [None]
  - TRANSIENT ISCHAEMIC ATTACK [None]
